FAERS Safety Report 5790710-6 (Version None)
Quarter: 2008Q2

REPORT INFORMATION
  Report Type: 
  Country: None (occurrence: None)
  Receive Date: 20080626
  Receipt Date: 20080505
  Transmission Date: 20081010
  Serious: No
  Sender: FDA-Public Use
  Company Number: A0726284A

PATIENT
  Age: 36 Year
  Sex: Female
  Weight: 72 kg

DRUGS (3)
  1. ALLI [Suspect]
     Dates: start: 20080428
  2. ANTIOXIDANTS [Concomitant]
  3. MELALEUCA [Concomitant]

REACTIONS (5)
  - ABDOMINAL DISTENSION [None]
  - BOWEL MOVEMENT IRREGULARITY [None]
  - CONSTIPATION [None]
  - FLUID RETENTION [None]
  - WEIGHT INCREASED [None]
